FAERS Safety Report 10696263 (Version 1)
Quarter: 2015Q1

REPORT INFORMATION
  Report Type: Spontaneous
  Country: US (occurrence: None)
  Receive Date: 20150106
  Receipt Date: 20150106
  Transmission Date: 20150721
  Serious: Yes (Disabling)
  Sender: FDA-Public Use
  Company Number: None

PATIENT
  Age: 88 Year
  Sex: Male
  Weight: 81.65 kg

DRUGS (1)
  1. RECLAST [Suspect]
     Active Substance: ZOLEDRONIC ACID
     Indication: OSTEOPOROSIS
     Dosage: 5 MGM; YEARLY; IV INFUSION

REACTIONS (5)
  - Injection site pruritus [None]
  - Dysstasia [None]
  - Back pain [None]
  - Gait disturbance [None]
  - Muscle spasms [None]
